FAERS Safety Report 10612087 (Version 1)
Quarter: 2014Q4

REPORT INFORMATION
  Report Type: Spontaneous
  Country: FR (occurrence: FR)
  Receive Date: 20141127
  Receipt Date: 20141127
  Transmission Date: 20150529
  Serious: Yes (Death)
  Sender: FDA-Public Use
  Company Number: FR-CIPLA LTD.-2014FR02100

PATIENT

DRUGS (3)
  1. INIPARIB [Suspect]
     Active Substance: INIPARIB
     Indication: NON-SMALL CELL LUNG CANCER STAGE IV
     Dosage: 5.6 MG/KG 1 H INTRAVENOUS INFUSION, DAYS 1, 4, 8, AND 11) EVERY 3 WEEKS FOR SIX CYCLES
  2. CISPLATIN. [Suspect]
     Active Substance: CISPLATIN
     Indication: NON-SMALL CELL LUNG CANCER STAGE IV
     Dosage: 5 MG/M2 (DAY 1) EVERY 3 WEEKS FOR SIX CYCLES
  3. GEMCITABINE [Suspect]
     Active Substance: GEMCITABINE\GEMCITABINE HYDROCHLORIDE
     Indication: NON-SMALL CELL LUNG CANCER STAGE IV
     Dosage: 1250 MG/M2 (DAYS 1 AND 8) EVERY 3 WEEKS FOR SIX CYCLES

REACTIONS (1)
  - Cardiac failure [Fatal]
